FAERS Safety Report 15895378 (Version 1)
Quarter: 2019Q1

REPORT INFORMATION
  Report Type: Spontaneous
  Country: US (occurrence: US)
  Receive Date: 20190131
  Receipt Date: 20190131
  Transmission Date: 20190417
  Serious: No
  Sender: FDA-Public Use
  Company Number: US-TEVA-2019-US-997757

PATIENT

DRUGS (1)
  1. ESTRADIOL INSERTS [Suspect]
     Active Substance: ESTRADIOL
     Route: 065

REACTIONS (2)
  - Pain in extremity [Unknown]
  - Abdominal discomfort [Unknown]
